FAERS Safety Report 8457427 (Version 2)
Quarter: 2013Q1

REPORT INFORMATION
  Report Type: Spontaneous
  Country: US (occurrence: None)
  Receive Date: 20120306
  Receipt Date: 20130304
  Transmission Date: 20140127
  Serious: Yes (Other)
  Sender: FDA-Public Use
  Company Number: ADR-2012-00479

PATIENT
  Sex: Male

DRUGS (2)
  1. LIORESAL [Suspect]
     Dosage: 100 MCG/DAY ?
  2. LIORESAL [Suspect]
     Dosage: 100 MCG/DAY ?

REACTIONS (3)
  - MUSCLE SPASTICITY [None]
  - JOINT DISLOCATION [None]
  - PAIN [None]
